FAERS Safety Report 26097027 (Version 1)
Quarter: 2025Q4

REPORT INFORMATION
  Report Type: Other
  Country: AU (occurrence: AU)
  Receive Date: 20251127
  Receipt Date: 20251127
  Transmission Date: 20260118
  Serious: Yes (Other)
  Sender: LUPIN
  Company Number: AU-LUPIN PHARMACEUTICALS INC.-2025-10629

PATIENT
  Age: 14 Year
  Sex: Male

DRUGS (3)
  1. FLUOXETINE HYDROCHLORIDE [Suspect]
     Active Substance: FLUOXETINE HYDROCHLORIDE
     Indication: Product used for unknown indication
     Dosage: UNK
     Route: 065
  2. MELATONIN [Suspect]
     Active Substance: MELATONIN
     Indication: Product used for unknown indication
     Dosage: UNK
     Route: 065
  3. QUETIAPINE FUMARATE [Suspect]
     Active Substance: QUETIAPINE FUMARATE
     Indication: Product used for unknown indication
     Dosage: UNK
     Route: 065

REACTIONS (4)
  - Inflammatory bowel disease [Unknown]
  - Gastrointestinal disorder [Unknown]
  - Condition aggravated [Unknown]
  - Off label use [Unknown]
